FAERS Safety Report 13713854 (Version 3)
Quarter: 2017Q4

REPORT INFORMATION
  Report Type: Report from Study
  Country: GB (occurrence: GB)
  Receive Date: 20170704
  Receipt Date: 20171106
  Transmission Date: 20180320
  Serious: Yes (Other)
  Sender: FDA-Public Use
  Company Number: GB-BRISTOL-MYERS SQUIBB COMPANY-BMS-2017-034373

PATIENT
  Sex: Female

DRUGS (1)
  1. ABATACEPT [Suspect]
     Active Substance: ABATACEPT
     Indication: RHEUMATOID ARTHRITIS
     Dosage: 125 MG, QWK
     Route: 058
     Dates: start: 20140103

REACTIONS (6)
  - Eczema [Unknown]
  - Mouth ulceration [Unknown]
  - Rheumatoid arthritis [Recovering/Resolving]
  - Back pain [Unknown]
  - Foot operation [Unknown]
  - Neck pain [Unknown]
